FAERS Safety Report 8707466 (Version 3)
Quarter: 2012Q4

REPORT INFORMATION
  Report Type: 
  Country: US (occurrence: US)
  Receive Date: 20120804
  Receipt Date: 20121111
  Transmission Date: 20130627
  Serious: Yes (Other)
  Sender: FDA-Public Use
  Company Number: US-009507513-1208USA000244

PATIENT
  Age: 49 None
  Sex: Male

DRUGS (3)
  1. PEG-INTRON [Suspect]
     Indication: HEPATITIS C
     Dosage: UNK
     Route: 058
     Dates: start: 20120509
  2. REBETOL [Suspect]
     Indication: HEPATITIS C
     Dosage: UNK
     Route: 048
     Dates: start: 20120509
  3. VICTRELIS [Suspect]
     Indication: HEPATITIS C
     Dosage: UNK
     Route: 048
     Dates: start: 20120607

REACTIONS (20)
  - Convulsion [Unknown]
  - Loss of consciousness [Unknown]
  - Contusion [Unknown]
  - Fatigue [Unknown]
  - Nausea [Unknown]
  - Back pain [Unknown]
  - Abdominal pain upper [Unknown]
  - Dizziness [Unknown]
  - Head discomfort [Unknown]
  - Tremor [Unknown]
  - Fall [Unknown]
  - Blood creatinine increased [Unknown]
  - Hypotension [Unknown]
  - Somnolence [Recovered/Resolved]
  - Migraine [Recovered/Resolved]
  - Eye pain [Unknown]
  - Alopecia [Unknown]
  - Vision blurred [Unknown]
  - Red blood cell count abnormal [Unknown]
  - White blood cell count abnormal [Unknown]
